FAERS Safety Report 12787309 (Version 1)
Quarter: 2016Q3

REPORT INFORMATION
  Report Type: Spontaneous
  Country: US (occurrence: US)
  Receive Date: 20160927
  Receipt Date: 20160927
  Transmission Date: 20161109
  Serious: Yes (Hospitalization)
  Sender: FDA-Public Use
  Company Number: None

PATIENT
  Age: 65 Year
  Sex: Male
  Weight: 108.9 kg

DRUGS (1)
  1. CETUXIMAB [Suspect]
     Active Substance: CETUXIMAB
     Indication: LARYNGEAL SQUAMOUS CELL CARCINOMA
     Route: 042
     Dates: start: 20160907, end: 20160907

REACTIONS (9)
  - Nausea [None]
  - Myalgia [None]
  - Dizziness [None]
  - Blood pressure systolic decreased [None]
  - Back pain [None]
  - Defaecation urgency [None]
  - Pyrexia [None]
  - Hyperhidrosis [None]
  - Vomiting [None]

NARRATIVE: CASE EVENT DATE: 20160907
